FAERS Safety Report 7747504-1 (Version None)
Quarter: 2011Q3

REPORT INFORMATION
  Report Type: 
  Country: None (occurrence: None)
  Receive Date: 20110913
  Receipt Date: 20110908
  Transmission Date: 20111222
  Serious: Yes (Death, Hospitalization)
  Sender: FDA-Public Use
  Company Number: IT-CEPHALON-2011003714

PATIENT
  Sex: Male
  Weight: 63 kg

DRUGS (9)
  1. LASIX [Concomitant]
     Dates: start: 20110430, end: 20110514
  2. OFATUMUMAB [Suspect]
     Route: 042
     Dates: start: 20110309, end: 20110413
  3. LEVOFLOXACIN [Concomitant]
     Dates: start: 20110427, end: 20110513
  4. POTASSIUM CHLORIDE [Concomitant]
     Dates: start: 20110509, end: 20110512
  5. METHYLPREDNISOLONE [Concomitant]
     Dates: start: 20110428, end: 20110513
  6. GRANOCYTE [Concomitant]
     Dates: start: 20110428, end: 20110511
  7. PIPERACILLIN AND TAZOBACTAM [Concomitant]
     Dates: start: 20110427, end: 20110514
  8. GLAUCOSTAT [Concomitant]
     Dates: start: 20110428, end: 20110514
  9. TREANDA [Suspect]
     Route: 042
     Dates: start: 20110307, end: 20110415

REACTIONS (3)
  - HYPOGLYCAEMIA [None]
  - DUODENAL ULCER HAEMORRHAGE [None]
  - FEBRILE NEUTROPENIA [None]
